FAERS Safety Report 11837422 (Version 1)
Quarter: 2015Q4

REPORT INFORMATION
  Report Type: Spontaneous
  Country: DE (occurrence: DE)
  Receive Date: 20151215
  Receipt Date: 20151215
  Transmission Date: 20160305
  Serious: Yes (Other)
  Sender: FDA-Public Use
  Company Number: DE-SA-2015SA206404

PATIENT

DRUGS (1)
  1. AUBAGIO [Suspect]
     Active Substance: TERIFLUNOMIDE
     Indication: MULTIPLE SCLEROSIS
     Route: 048
     Dates: end: 2015

REACTIONS (6)
  - Apathy [Unknown]
  - Personality change [Unknown]
  - Drug intolerance [Unknown]
  - Alopecia [Unknown]
  - Major depression [Unknown]
  - Decreased appetite [Unknown]
